FAERS Safety Report 21312116 (Version 1)
Quarter: 2022Q3

REPORT INFORMATION
  Report Type: Spontaneous
  Country: US (occurrence: None)
  Receive Date: 20220909
  Receipt Date: 20220909
  Transmission Date: 20221027
  Serious: No
  Sender: FDA-Public Use
  Company Number: US-ARIS GLOBAL-202204-0671

PATIENT
  Sex: Female
  Weight: 65.376 kg

DRUGS (11)
  1. OXERVATE [Suspect]
     Active Substance: CENEGERMIN-BKBJ
     Indication: Punctate keratitis
     Route: 047
     Dates: start: 20220411
  2. UNKNOWN ANTIBIOTIC INFUSION [Concomitant]
  3. NAPROXEN [Concomitant]
     Active Substance: NAPROXEN
  4. BUMETANIDE [Concomitant]
     Active Substance: BUMETANIDE
  5. LABETALOL HYDROCHLORIDE [Concomitant]
     Active Substance: LABETALOL HYDROCHLORIDE
  6. NIFEDIPINE [Concomitant]
     Active Substance: NIFEDIPINE
  7. LOSARTAN POTASSIUM [Concomitant]
     Active Substance: LOSARTAN POTASSIUM
  8. PREDNISOLONE-NEPAFENAC [Concomitant]
  9. REFRESH CLASSIC [Concomitant]
     Active Substance: POLYVINYL ALCOHOL\POVIDONE
  10. IRON [Concomitant]
     Active Substance: IRON
     Dosage: 159(45)MG TABLET EXTENDED RELEASE
  11. VITAMIN D-400 [Concomitant]

REACTIONS (1)
  - Eyelid pain [Unknown]
